FAERS Safety Report 9426337 (Version 1)
Quarter: 2013Q3

REPORT INFORMATION
  Report Type: Spontaneous
  Country: CO (occurrence: CO)
  Receive Date: 20130730
  Receipt Date: 20130730
  Transmission Date: 20140515
  Serious: Yes (Other)
  Sender: FDA-Public Use
  Company Number: CO-AMGEN-COLSP2013052939

PATIENT
  Age: 31 Year
  Sex: Male

DRUGS (2)
  1. ENBREL [Suspect]
     Indication: RHEUMATOID ARTHRITIS
     Dosage: 50 MG, WEEKLY
     Route: 058
     Dates: start: 2008, end: 20130703
  2. METHOTREXATE /00113802/ [Suspect]
     Indication: RHEUMATOID ARTHRITIS
     Dosage: 3 TABLETS OF 5MG ON TUESDAY AND 3 TABLETS OF 5MG ON WEDNESDAY, WEEKLY
     Route: 048
     Dates: start: 2005

REACTIONS (3)
  - Rheumatoid arthritis [Not Recovered/Not Resolved]
  - Decreased appetite [Not Recovered/Not Resolved]
  - Cough [Not Recovered/Not Resolved]
